FAERS Safety Report 7762093-3 (Version None)
Quarter: 2011Q3

REPORT INFORMATION
  Report Type: 
  Country: None (occurrence: None)
  Receive Date: 20110920
  Receipt Date: 20110920
  Transmission Date: 20111222
  Serious: Yes (Other)
  Sender: FDA-Public Use
  Company Number: None

PATIENT
  Age: 42 Year
  Sex: Male
  Weight: 107.04 kg

DRUGS (2)
  1. CRESTOR [Suspect]
     Indication: BLOOD CHOLESTEROL INCREASED
     Dosage: 20MG
     Route: 048
     Dates: start: 20110531, end: 20110624
  2. CRESTOR [Suspect]
     Indication: HYPERLIPIDAEMIA
     Dosage: 20MG
     Route: 048
     Dates: start: 20110531, end: 20110624

REACTIONS (9)
  - RHABDOMYOLYSIS [None]
  - MYALGIA [None]
  - PAIN IN EXTREMITY [None]
  - FATIGUE [None]
  - CHROMATURIA [None]
  - BREATH ODOUR [None]
  - PAIN [None]
  - ASTHENIA [None]
  - GAIT DISTURBANCE [None]
